FAERS Safety Report 24102152 (Version 1)
Quarter: 2024Q3

REPORT INFORMATION
  Report Type: Spontaneous
  Country: US (occurrence: US)
  Receive Date: 20240717
  Receipt Date: 20240717
  Transmission Date: 20241017
  Serious: Yes (Hospitalization, Other)
  Sender: RANBAXY
  Company Number: US-SUN PHARMACEUTICAL INDUSTRIES LTD-2024R1-456665

PATIENT
  Age: 60 Day

DRUGS (10)
  1. FOSPHENYTOIN [Suspect]
     Active Substance: FOSPHENYTOIN
     Indication: Partial seizures
     Dosage: UNK (20-MG PES/KG)
     Route: 065
  2. FOSPHENYTOIN [Suspect]
     Active Substance: FOSPHENYTOIN
     Dosage: UNK (10-MG PES/KG)
     Route: 042
  3. LEVETIRACETAM [Suspect]
     Active Substance: LEVETIRACETAM
     Indication: Partial seizures
     Dosage: 60 MILLIGRAM/KILOGRAM
     Route: 065
  4. LEVETIRACETAM [Suspect]
     Active Substance: LEVETIRACETAM
     Dosage: 30 MILLIGRAM/KILOGRAM, BID
     Route: 042
  5. PHENOBARBITAL [Suspect]
     Active Substance: PHENOBARBITAL
     Indication: Partial seizures
     Dosage: 20 MILLIGRAM/KILOGRAM
     Route: 065
  6. PENTOBARBITAL [Suspect]
     Active Substance: PENTOBARBITAL
     Indication: Partial seizures
     Dosage: 0.5 MILLIGRAM/KILOGRAM/HOUR
     Route: 065
  7. PENTOBARBITAL [Suspect]
     Active Substance: PENTOBARBITAL
     Dosage: 1.5 MILLIGRAM/KILOGRAM/HOUR
     Route: 065
  8. MIDAZOLAM [Suspect]
     Active Substance: MIDAZOLAM
     Indication: Partial seizures
     Dosage: 0.1 MILLIGRAM/KILOGRAM/HOUR
     Route: 065
  9. MIDAZOLAM [Suspect]
     Active Substance: MIDAZOLAM
     Dosage: 1 MILLIGRAM/KILOGRAM/HOUR
     Route: 065
  10. LORAZEPAM [Suspect]
     Active Substance: LORAZEPAM
     Indication: Partial seizures
     Dosage: 0.1 MILLIGRAM/KILOGRAM
     Route: 042

REACTIONS (4)
  - Drug ineffective [Unknown]
  - Lactic acidosis [Unknown]
  - Condition aggravated [Unknown]
  - Toxicity to various agents [Unknown]
